FAERS Safety Report 4318289-6 (Version None)
Quarter: 2004Q1

REPORT INFORMATION
  Report Type: 
  Country: None (occurrence: None)
  Receive Date: 20040315
  Receipt Date: 20031118
  Transmission Date: 20041129
  Serious: No
  Sender: FDA-Public Use
  Company Number: 2003187272US

PATIENT
  Age: 65 Year
  Sex: Female

DRUGS (3)
  1. BEXTRA [Suspect]
     Indication: OSTEOARTHRITIS
     Dosage: 10 MG
     Dates: start: 20030625, end: 20030101
  2. SYNTHROID [Concomitant]
  3. LITHIUM [Concomitant]

REACTIONS (3)
  - DRUG INEFFECTIVE [None]
  - FORMICATION [None]
  - NIGHTMARE [None]
